FAERS Safety Report 9297354 (Version 1)
Quarter: 2013Q2

REPORT INFORMATION
  Report Type: Spontaneous
  Country: US (occurrence: US)
  Receive Date: 20130520
  Receipt Date: 20130520
  Transmission Date: 20140414
  Serious: Yes (Other)
  Sender: FDA-Public Use
  Company Number: US-009507513-1305USA009663

PATIENT
  Age: 66 Year
  Sex: Female

DRUGS (3)
  1. REBETOL [Suspect]
     Indication: HEPATITIS C
     Dosage: UNK
     Route: 048
     Dates: start: 20130228
  2. VICTRELIS [Suspect]
     Indication: HEPATITIS C
     Dosage: UNK
     Route: 048
     Dates: start: 20130329
  3. PEGASYS [Suspect]
     Indication: HEPATITIS C
     Dosage: UNK
     Dates: start: 20130228

REACTIONS (15)
  - Syncope [Unknown]
  - Fall [Unknown]
  - Abdominal discomfort [Unknown]
  - Ear disorder [Unknown]
  - Tinnitus [Unknown]
  - Nausea [Unknown]
  - Vomiting [Unknown]
  - Pollakiuria [Unknown]
  - Dry mouth [Unknown]
  - Asthenia [Unknown]
  - Insomnia [Unknown]
  - Dysgeusia [Unknown]
  - Decreased appetite [Unknown]
  - Headache [Unknown]
  - Anaemia [Unknown]
